FAERS Safety Report 4817149-1 (Version None)
Quarter: 2006Q1

REPORT INFORMATION
  Report Type: 
  Country: None (occurrence: None)
  Receive Date: 20051018
  Receipt Date: 20050523
  Transmission Date: 20060701
  Serious: Yes (Hospitalization)
  Sender: FDA-Public Use
  Company Number: PHEH2005US05832

PATIENT
  Age: 58 Year
  Sex: Male

DRUGS (5)
  1. ZOMETA [Suspect]
     Indication: METASTASES TO BONE
     Dosage: 4 MG, ONCE/SINGLE, INTRAVENOUS
     Route: 042
     Dates: start: 20050318, end: 20050318
  2. ATENOLOL [Concomitant]
  3. CASODEX [Concomitant]
  4. LISINOPRIL [Concomitant]
  5. PERCOCET [Concomitant]

REACTIONS (3)
  - BLOOD CREATININE INCREASED [None]
  - FEELING ABNORMAL [None]
  - RENAL FAILURE ACUTE [None]
